FAERS Safety Report 25094616 (Version 1)
Quarter: 2025Q1

REPORT INFORMATION
  Report Type: Spontaneous
  Country: CN (occurrence: CN)
  Receive Date: 20250319
  Receipt Date: 20250319
  Transmission Date: 20250409
  Serious: Yes (Other)
  Sender: PFIZER
  Company Number: CN-PFIZER INC-PV202500031741

PATIENT
  Age: 4 Year
  Sex: Male
  Weight: 16.8 kg

DRUGS (3)
  1. CYTARABINE [Suspect]
     Active Substance: CYTARABINE
     Indication: Acute lymphocytic leukaemia
     Dosage: 0.051 G, 1X/DAY
     Route: 058
     Dates: start: 20250225, end: 20250308
  2. MERCAPTOPURINE [Suspect]
     Active Substance: MERCAPTOPURINE
     Indication: Acute lymphocytic leukaemia
     Dosage: 37.5 MG, 1X/DAY
     Route: 048
     Dates: start: 20250223, end: 20250308
  3. SODIUM CHLORIDE [Concomitant]
     Active Substance: SODIUM CHLORIDE
     Dosage: 1 ML, 1X/DAY
     Route: 041
     Dates: start: 20250225, end: 20250308

REACTIONS (2)
  - Liver injury [Not Recovered/Not Resolved]
  - Myelosuppression [Recovering/Resolving]

NARRATIVE: CASE EVENT DATE: 20250302
